FAERS Safety Report 23350713 (Version 1)
Quarter: 2023Q4

REPORT INFORMATION
  Report Type: Spontaneous
  Country: KR (occurrence: KR)
  Receive Date: 20231229
  Receipt Date: 20231229
  Transmission Date: 20240110
  Serious: No
  Sender: FDA-Public Use
  Company Number: KR-PFIZER INC-PV202300198030

PATIENT
  Age: 9 Year
  Sex: Male

DRUGS (1)
  1. GENOTROPIN [Suspect]
     Active Substance: SOMATROPIN
     Indication: Short stature
     Dosage: 6 IU, 6 TIMES A WEEK
     Dates: start: 202307

REACTIONS (4)
  - Device mechanical issue [Unknown]
  - Device breakage [Unknown]
  - Product physical issue [Unknown]
  - Device use issue [Unknown]

NARRATIVE: CASE EVENT DATE: 20230101
